FAERS Safety Report 5729768-9 (Version None)
Quarter: 2008Q2

REPORT INFORMATION
  Report Type: 
  Country: None (occurrence: None)
  Receive Date: 20080501
  Receipt Date: 20080425
  Transmission Date: 20081010
  Serious: Yes (Hospitalization)
  Sender: FDA-Public Use
  Company Number: 2008-02655

PATIENT
  Age: 49 Year
  Sex: Male

DRUGS (2)
  1. INFED [Suspect]
     Indication: ANAEMIA
     Dosage: INTRAVENOUS
     Route: 042
  2. ERYTHROPOIETIN(ERYTHROPOIETIN) [Suspect]
     Indication: ANAEMIA

REACTIONS (3)
  - CONDITION AGGRAVATED [None]
  - HEPATIC SIDEROSIS [None]
  - HEPATITIS C [None]
